FAERS Safety Report 21897013 (Version 1)
Quarter: 2023Q1

REPORT INFORMATION
  Report Type: Report from Study
  Country: JP (occurrence: JP)
  Receive Date: 20230123
  Receipt Date: 20230123
  Transmission Date: 20230417
  Serious: Yes (Hospitalization)
  Sender: FDA-Public Use
  Company Number: JP-ORPHANEU-2019007847

PATIENT

DRUGS (22)
  1. CYSTADANE [Suspect]
     Active Substance: BETAINE
     Indication: Homocystinuria
     Dosage: 0.65 GRAM DAILY, BID
     Route: 048
     Dates: start: 20151222, end: 20160125
  2. CYSTADANE [Suspect]
     Active Substance: BETAINE
     Dosage: 0.75 GRAM DAILY, BID
     Route: 048
     Dates: start: 20160126, end: 20160222
  3. CYSTADANE [Suspect]
     Active Substance: BETAINE
     Dosage: 1 GRAM DAILY, BID
     Route: 048
     Dates: start: 20160223, end: 20161003
  4. CYSTADANE [Suspect]
     Active Substance: BETAINE
     Dosage: 1.5 GRAM DAILY,, BID
     Route: 048
     Dates: start: 20161004, end: 20200217
  5. CYSTADANE [Suspect]
     Active Substance: BETAINE
     Dosage: 2 GRAM DAILY, BID
     Route: 048
     Dates: start: 20200218
  6. TEGRETOL [Concomitant]
     Active Substance: CARBAMAZEPINE
     Indication: Product used for unknown indication
     Dosage: 25 MILLIGRAM, BID
     Route: 048
  7. TEGRETOL [Concomitant]
     Active Substance: CARBAMAZEPINE
     Indication: Disease complication
     Dosage: 40 MILLIGRAM, BID
     Route: 048
     Dates: end: 20160716
  8. TEGRETOL [Concomitant]
     Active Substance: CARBAMAZEPINE
     Dosage: 30 MILLIGRAM, BID
     Route: 048
     Dates: start: 20160717, end: 20160914
  9. TEGRETOL [Concomitant]
     Active Substance: CARBAMAZEPINE
     Dosage: 10 MILLIGRAM, QD
     Route: 048
     Dates: start: 20170130, end: 20170208
  10. BIOTIN [Concomitant]
     Active Substance: BIOTIN
     Indication: Product used for unknown indication
     Dosage: 0.1 MG, QD DRY SYRUP
     Route: 048
     Dates: start: 20151228
  11. FRESMIN S [HYDROXOCOBALAMIN ACETATE] [Concomitant]
     Indication: Product used for unknown indication
     Dosage: 1 AMPOULE OF INJECTION, QD
     Route: 058
  12. LEVOCARNITINE [Concomitant]
     Active Substance: LEVOCARNITINE
     Indication: Product used for unknown indication
     Dosage: 7.5 MILLILITER, TID
     Route: 048
     Dates: end: 20160711
  13. LEVOCARNITINE [Concomitant]
     Active Substance: LEVOCARNITINE
     Dosage: 10 MILLILITER, TID
     Route: 048
     Dates: start: 20160712, end: 20160914
  14. LEVOCARNITINE [Concomitant]
     Active Substance: LEVOCARNITINE
     Dosage: 15 MILLILITER, TID
     Route: 048
     Dates: start: 20160915, end: 20161220
  15. LEVOCARNITINE [Concomitant]
     Active Substance: LEVOCARNITINE
     Dosage: 5 MILLILITER
     Route: 048
     Dates: start: 20161221
  16. LEVOCARNITINE [Concomitant]
     Active Substance: LEVOCARNITINE
     Dosage: 15 MILLILITER, TID
     Route: 048
  17. BIFIDOBACTERIUM SPP. [Concomitant]
     Active Substance: BIFIDOBACTERIUM SPP.
     Indication: Disease complication
     Dosage: 1.5 GRAM, TID
     Route: 048
     Dates: end: 20170711
  18. BIFIDOBACTERIUM SPP. [Concomitant]
     Active Substance: BIFIDOBACTERIUM SPP.
     Dosage: 1 GRAM, TID
     Route: 048
     Dates: start: 20170131, end: 20170214
  19. BIFIDOBACTERIUM SPP. [Concomitant]
     Active Substance: BIFIDOBACTERIUM SPP.
     Dosage: 1 GRAM, TID
     Route: 048
     Dates: start: 20170604, end: 20170621
  20. LEVOCARNITINE HYDROCHLORIDE [Concomitant]
     Active Substance: LEVOCARNITINE HYDROCHLORIDE
     Indication: Product used for unknown indication
     Dosage: 750 MILLIGRAM, TID
     Route: 048
  21. BIOTIN [Concomitant]
     Active Substance: BIOTIN
     Indication: Product used for unknown indication
     Dosage: 0.1 MILLILITER, QD
     Route: 048
  22. BANAN [Concomitant]
     Active Substance: CEFPODOXIME PROXETIL
     Indication: Disease complication
     Dosage: 70 MILLIGRAM, TID
     Route: 048
     Dates: end: 20160624

REACTIONS (2)
  - Gastroenteritis [Recovering/Resolving]
  - Gastroenteritis [Recovering/Resolving]

NARRATIVE: CASE EVENT DATE: 20170128
